FAERS Safety Report 21615892 (Version 1)
Quarter: 2022Q4

REPORT INFORMATION
  Report Type: Spontaneous
  Country: US (occurrence: None)
  Receive Date: 20221118
  Receipt Date: 20221118
  Transmission Date: 20230113
  Serious: Yes (Hospitalization)
  Sender: FDA-Public Use
  Company Number: None

PATIENT
  Age: 74 Year
  Sex: Female
  Weight: 86.8 kg

DRUGS (2)
  1. VERZENIO [Suspect]
     Active Substance: ABEMACICLIB
     Dosage: FREQUENCY : TWICE A DAY;?
     Dates: start: 20220415, end: 20221108
  2. VERZENIO [Concomitant]
     Active Substance: ABEMACICLIB
     Dates: start: 20220415, end: 20221108

REACTIONS (7)
  - Drainage [None]
  - Radiation pneumonitis [None]
  - Pneumonitis [None]
  - Adverse drug reaction [None]
  - Atypical pneumonia [None]
  - Pneumonia viral [None]
  - Interstitial lung disease [None]

NARRATIVE: CASE EVENT DATE: 20221108
